FAERS Safety Report 15830881 (Version 1)
Quarter: 2019Q1

REPORT INFORMATION
  Report Type: Spontaneous
  Country: JP (occurrence: JP)
  Receive Date: 20190116
  Receipt Date: 20190116
  Transmission Date: 20190417
  Serious: Yes (Death, Other)
  Sender: FDA-Public Use
  Company Number: JP-ASTELLAS-2019US001646

PATIENT
  Age: 17 Year

DRUGS (1)
  1. AMPHOTERICIN B, LIPOSOME [Suspect]
     Active Substance: AMPHOTERICIN B
     Indication: GRANULOMA
     Dosage: UNK, UNKNOWN FREQ.
     Route: 041

REACTIONS (1)
  - Chronic granulomatous disease [Fatal]
